FAERS Safety Report 5730955-4 (Version None)
Quarter: 2008Q2

REPORT INFORMATION
  Report Type: 
  Country: None (occurrence: None)
  Receive Date: 20080430
  Receipt Date: 20071217
  Transmission Date: 20081010
  Serious: No
  Sender: FDA-Public Use
  Company Number: 2007PV033858

PATIENT
  Age: 68 Year
  Sex: Male
  Weight: 127.0072 kg

DRUGS (9)
  1. SYMLIN [Suspect]
     Indication: DECREASED APPETITE
     Dosage: 120 MCG;QD;SC ; 60 MCG;QD;SC
     Route: 058
     Dates: start: 20060801, end: 20060101
  2. SYMLIN [Suspect]
     Indication: TYPE 2 DIABETES MELLITUS
     Dosage: 120 MCG;QD;SC ; 60 MCG;QD;SC
     Route: 058
     Dates: start: 20060801, end: 20060101
  3. SYMLIN [Suspect]
     Indication: WEIGHT CONTROL
     Dosage: 120 MCG;QD;SC ; 60 MCG;QD;SC
     Route: 058
     Dates: start: 20060801, end: 20060101
  4. SYMLIN [Suspect]
     Indication: DECREASED APPETITE
     Dosage: 120 MCG;QD;SC ; 60 MCG;QD;SC
     Route: 058
     Dates: start: 20060101, end: 20061001
  5. SYMLIN [Suspect]
     Indication: TYPE 2 DIABETES MELLITUS
     Dosage: 120 MCG;QD;SC ; 60 MCG;QD;SC
     Route: 058
     Dates: start: 20060101, end: 20061001
  6. SYMLIN [Suspect]
     Indication: WEIGHT CONTROL
     Dosage: 120 MCG;QD;SC ; 60 MCG;QD;SC
     Route: 058
     Dates: start: 20060101, end: 20061001
  7. METFORMIN [Concomitant]
  8. NOVOLIN N [Concomitant]
  9. AVANDIA [Concomitant]

REACTIONS (2)
  - DECREASED APPETITE [None]
  - EARLY SATIETY [None]
